FAERS Safety Report 5252255-1 (Version None)
Quarter: 2007Q1

REPORT INFORMATION
  Report Type: 
  Country: None (occurrence: None)
  Receive Date: 20070301
  Receipt Date: 20070215
  Transmission Date: 20070707
  Serious: Yes (Other)
  Sender: FDA-Public Use
  Company Number: PHBS2007JP03204

PATIENT
  Age: 69 Year
  Sex: Female

DRUGS (7)
  1. ADALAT [Suspect]
     Dosage: 20 MG, QD
     Route: 048
     Dates: start: 20061102
  2. ROCALTROL [Concomitant]
     Dosage: 0.25 UG, UNK
  3. TICLOPIDINE HCL [Concomitant]
     Dosage: 100 MG, UNK
     Route: 048
  4. GASTER D [Concomitant]
     Dosage: 20 MG/DAY
     Route: 048
  5. CARDENALIN [Concomitant]
     Dosage: 2 MG, UNK
     Route: 048
  6. TANKARU [Concomitant]
     Dosage: 1500 MG, UNK
     Route: 048
  7. DIOVAN [Suspect]
     Indication: HYPERTENSION
     Dosage: 160 MG, QD
     Route: 048
     Dates: start: 20041118, end: 20070217

REACTIONS (1)
  - EOSINOPHIL COUNT INCREASED [None]
